FAERS Safety Report 15097729 (Version 1)
Quarter: 2018Q2

REPORT INFORMATION
  Report Type: Spontaneous
  Country: US (occurrence: US)
  Receive Date: 20180611
  Receipt Date: 20180611
  Transmission Date: 20180711
  Serious: No
  Sender: FDA-Public Use
  Company Number: None

PATIENT
  Age: 63 Year
  Sex: Female
  Weight: 66.15 kg

DRUGS (2)
  1. ONE-A-DAY NOS [Concomitant]
     Active Substance: MINERALS\VITAMINS
  2. TOPIRAMATE 25 MG CIP [Suspect]
     Active Substance: TOPIRAMATE
     Indication: MIGRAINE PROPHYLAXIS
     Dosage: ?          QUANTITY:270 TABLET(S);?
     Route: 048
     Dates: start: 20180430, end: 20180610

REACTIONS (11)
  - Thirst [None]
  - Feeling abnormal [None]
  - Decreased appetite [None]
  - Diarrhoea [None]
  - Nausea [None]
  - Tremor [None]
  - Nervousness [None]
  - Fatigue [None]
  - Dizziness [None]
  - Somnolence [None]
  - Product substitution issue [None]

NARRATIVE: CASE EVENT DATE: 20180506
